FAERS Safety Report 6414617-6 (Version None)
Quarter: 2009Q4

REPORT INFORMATION
  Report Type: 
  Country: None (occurrence: None)
  Receive Date: 20091021
  Receipt Date: 20091005
  Transmission Date: 20100525
  Serious: Yes (Life-Threatening, Other)
  Sender: FDA-Public Use
  Company Number: 2009S1000090

PATIENT
  Age: 6 Year
  Sex: Male
  Weight: 26.9 kg

DRUGS (2)
  1. INOMAX [Suspect]
     Indication: ACUTE RESPIRATORY DISTRESS SYNDROME
     Dosage: 40 PPM;CONT
  2. INOVENT (DELIVERY SYSTEM) [Suspect]

REACTIONS (2)
  - DEVICE FAILURE [None]
  - OXYGEN SATURATION DECREASED [None]
